FAERS Safety Report 7464989-9 (Version None)
Quarter: 2011Q2

REPORT INFORMATION
  Report Type: 
  Country: None (occurrence: None)
  Receive Date: 20110509
  Receipt Date: 20100827
  Transmission Date: 20111010
  Serious: No
  Sender: FDA-Public Use
  Company Number: US-SANOFI-AVENTIS-2010SA053153

PATIENT
  Age: 70 Year
  Sex: Female

DRUGS (4)
  1. APIDRA [Suspect]
     Dosage: 3-7 UNITS THREE TIMES A DAY. SLIDING SCALE WITH MEALS
     Route: 058
     Dates: start: 20050101
  2. LANTUS [Concomitant]
     Dosage: 10-20 UNITS DAILY.
     Route: 058
     Dates: start: 20050101
  3. APIDRA [Suspect]
     Dosage: 3-7 UNITS THREE TIMES A DAY. SLIDING SCALE WITH MEALS
     Route: 058
     Dates: start: 20050101
  4. APIDRA [Suspect]
     Dosage: 3-7 UNITS THREE TIMES A DAY. SLIDING SCALE WITH MEALS
     Route: 058
     Dates: start: 20050101

REACTIONS (3)
  - DIABETES MELLITUS INADEQUATE CONTROL [None]
  - ANXIETY [None]
  - HEADACHE [None]
